FAERS Safety Report 9003890 (Version 1)
Quarter: 2013Q1

REPORT INFORMATION
  Report Type: Report from Study
  Country: US (occurrence: US)
  Receive Date: 20130108
  Receipt Date: 20130108
  Transmission Date: 20140127
  Serious: Yes (Other)
  Sender: FDA-Public Use
  Company Number: US-ACTELION-A-US2012-77030

PATIENT
  Age: 57 Year
  Sex: Female

DRUGS (3)
  1. TRACLEER [Suspect]
     Indication: PULMONARY ARTERIAL HYPERTENSION
     Dosage: UNK
     Route: 048
     Dates: start: 20121213
  2. ADCIRCA [Concomitant]
  3. TYVASO [Concomitant]

REACTIONS (2)
  - Thrombosis [Unknown]
  - Pyrexia [Unknown]
